FAERS Safety Report 7936122-8 (Version None)
Quarter: 2011Q4

REPORT INFORMATION
  Report Type: 
  Country: None (occurrence: None)
  Receive Date: 20111121
  Receipt Date: 20111103
  Transmission Date: 20120403
  Serious: Yes (Hospitalization, Other)
  Sender: FDA-Public Use
  Company Number: 2011MA015983

PATIENT
  Age: 30 Year
  Sex: Female

DRUGS (1)
  1. VENLAFAXINE HYDROCHLORIDE [Suspect]
     Indication: INTENTIONAL OVERDOSE

REACTIONS (9)
  - OXYGEN SATURATION DECREASED [None]
  - HYPERHIDROSIS [None]
  - PULMONARY OEDEMA [None]
  - DYSPNOEA [None]
  - INTENTIONAL OVERDOSE [None]
  - BLOOD PRESSURE INCREASED [None]
  - TACHYPNOEA [None]
  - STRESS CARDIOMYOPATHY [None]
  - SUICIDE ATTEMPT [None]
